FAERS Safety Report 4763588-7 (Version None)
Quarter: 2005Q3

REPORT INFORMATION
  Report Type: 
  Country: None (occurrence: None)
  Receive Date: 20050908
  Receipt Date: 20050729
  Transmission Date: 20060218
  Serious: Yes (Hospitalization, Other)
  Sender: FDA-Public Use
  Company Number: US-MERCK-0508USA00477

PATIENT
  Age: 56 Year
  Sex: Male
  Weight: 96 kg

DRUGS (1)
  1. VIOXX [Suspect]
     Indication: NECK PAIN
     Route: 048

REACTIONS (3)
  - CARDIAC DISORDER [None]
  - MYOCARDIAL INFARCTION [None]
  - ROTATOR CUFF SYNDROME [None]
